FAERS Safety Report 5441686-2 (Version None)
Quarter: 2007Q3

REPORT INFORMATION
  Report Type: 
  Country: None (occurrence: None)
  Receive Date: 20070904
  Receipt Date: 20070820
  Transmission Date: 20080115
  Serious: Yes (Other)
  Sender: FDA-Public Use
  Company Number: DE-GENENTECH-246884

PATIENT
  Sex: Female

DRUGS (1)
  1. HERCEPTIN [Suspect]
     Indication: BREAST CANCER
     Dates: end: 20061201

REACTIONS (3)
  - HYPERTENSION [None]
  - MUSCULOSKELETAL CHEST PAIN [None]
  - PANCREATITIS CHRONIC [None]
